FAERS Safety Report 13491133 (Version 2)
Quarter: 2021Q1

REPORT INFORMATION
  Report Type: Other
  Country: US (occurrence: US)
  Receive Date: 20170427
  Receipt Date: 20210119
  Transmission Date: 20210419
  Serious: Yes (Other)
  Sender: FDA-Public Use
  Company Number: US-ROCHE-1869524

PATIENT
  Sex: Female
  Weight: 52.21 kg

DRUGS (7)
  1. OMEPRAZOLE. [Concomitant]
     Active Substance: OMEPRAZOLE
     Dosage: AS NEEDED ;ONGOING: YES
  2. ZOFRAN [Concomitant]
     Active Substance: ONDANSETRON HYDROCHLORIDE
     Dosage: AS NEEDED ;ONGOING: YES
  3. RITUXAN [Suspect]
     Active Substance: RITUXIMAB
     Indication: GRANULOMATOSIS WITH POLYANGIITIS
  4. SILDENAFIL. [Concomitant]
     Active Substance: SILDENAFIL
     Indication: PULMONARY HYPERTENSION
     Dosage: ONGOING:YES
     Dates: start: 2016
  5. PRILOSEC [Concomitant]
     Active Substance: OMEPRAZOLE MAGNESIUM
     Dosage: 20MG IN THE MORNING AND 20MG AT NIGHT ;ONGOING: YES
  6. RITUXAN [Suspect]
     Active Substance: RITUXIMAB
     Indication: MICROSCOPIC POLYANGIITIS
     Dosage: 1000MGX2 WEEKS THEN STOP FOR 5MONTHS
     Route: 042
     Dates: start: 201611
  7. RANITIDINE. [Concomitant]
     Active Substance: RANITIDINE
     Dosage: ONGOING:YES

REACTIONS (4)
  - Cyst rupture [Unknown]
  - Pyrexia [Not Recovered/Not Resolved]
  - Renal pain [Not Recovered/Not Resolved]
  - Drug ineffective [Unknown]
